FAERS Safety Report 10336189 (Version 1)
Quarter: 2014Q3

REPORT INFORMATION
  Report Type: Spontaneous
  Country: US (occurrence: US)
  Receive Date: 20140723
  Receipt Date: 20140723
  Transmission Date: 20150326
  Serious: No
  Sender: FDA-Public Use
  Company Number: US-BRISTOL-MYERS SQUIBB COMPANY-19915388

PATIENT
  Age: 69 Year
  Sex: Male
  Weight: 126.98 kg

DRUGS (2)
  1. SOTALOL. [Concomitant]
     Active Substance: SOTALOL
  2. COUMADIN [Suspect]
     Active Substance: WARFARIN SODIUM
     Indication: ATRIAL FIBRILLATION
     Dosage: 1-2 YEARS PRIOR TO THIS REPORT

REACTIONS (2)
  - Epistaxis [Unknown]
  - International normalised ratio fluctuation [Unknown]
